FAERS Safety Report 4784917-4 (Version None)
Quarter: 2005Q3

REPORT INFORMATION
  Report Type: 
  Country: None (occurrence: None)
  Receive Date: 20050929
  Receipt Date: 20050929
  Transmission Date: 20060218
  Serious: No
  Sender: FDA-Public Use
  Company Number: None

PATIENT
  Age: 53 Year
  Sex: Male
  Weight: 110 kg

DRUGS (1)
  1. GATIFLOXACIN [Suspect]
     Indication: SINUSITIS
     Dosage: 400MG  PO  QD
     Route: 048
     Dates: start: 20050824, end: 20050831

REACTIONS (4)
  - DYSARTHRIA [None]
  - HYPERHIDROSIS [None]
  - NAUSEA [None]
  - VISION BLURRED [None]
